FAERS Safety Report 21046794 (Version 1)
Quarter: 2022Q3

REPORT INFORMATION
  Report Type: Spontaneous
  Country: NL (occurrence: NL)
  Receive Date: 20220706
  Receipt Date: 20220706
  Transmission Date: 20221026
  Serious: Yes (Other)
  Sender: FDA-Public Use
  Company Number: NL-MYLANLABS-2022M1049427

PATIENT
  Age: 9 Year
  Sex: Female

DRUGS (8)
  1. TACROLIMUS [Suspect]
     Active Substance: TACROLIMUS
     Indication: Polychondritis
     Dosage: UNK
     Route: 065
  2. ANAKINRA [Concomitant]
     Active Substance: ANAKINRA
     Indication: Polychondritis
     Dosage: UNK
     Route: 065
  3. METHYLPREDNISOLONE [Concomitant]
     Active Substance: METHYLPREDNISOLONE
     Indication: Polychondritis
     Dosage: UNK, PULSE THERAPY
     Route: 065
  4. CYCLOPHOSPHAMIDE [Concomitant]
     Active Substance: CYCLOPHOSPHAMIDE
     Indication: Polychondritis
     Dosage: 750 MILLIGRAM/SQ. METER, MONTHLY
     Route: 065
  5. CYCLOPHOSPHAMIDE [Concomitant]
     Active Substance: CYCLOPHOSPHAMIDE
     Indication: Immunosuppressant drug therapy
     Dosage: 120 MILLIGRAM/KILOGRAM
     Route: 065
  6. THYMOCYTE IMMUNE GLOBULIN NOS [Concomitant]
     Active Substance: THYMOCYTE IMMUNE GLOBULIN NOS
     Indication: Immunosuppressant drug therapy
     Dosage: 10 MILLIGRAM/KILOGRAM
     Route: 065
  7. METHOTREXATE [Concomitant]
     Active Substance: METHOTREXATE
     Indication: Polychondritis
     Dosage: UNK
     Route: 065
  8. FLUDARABINE [Concomitant]
     Active Substance: FLUDARABINE PHOSPHATE
     Indication: Immunosuppressant drug therapy
     Dosage: 150 MILLIGRAM/SQ. METER
     Route: 065

REACTIONS (2)
  - Nephropathy toxic [Unknown]
  - Off label use [Unknown]
